FAERS Safety Report 14403973 (Version 1)
Quarter: 2018Q1

REPORT INFORMATION
  Report Type: Report from Study
  Country: US (occurrence: US)
  Receive Date: 20180117
  Receipt Date: 20180117
  Transmission Date: 20180509
  Serious: Yes (Other)
  Sender: FDA-Public Use
  Company Number: US-SHIRE-US201800010

PATIENT
  Sex: Female

DRUGS (1)
  1. HUMAN IMMUNOGLOBULIN; HYALURONIDASE [Suspect]
     Active Substance: HUMAN IMMUNOGLOBULIN G\HYALURONIDASE RECOMBINANT HUMAN
     Indication: IMMUNODEFICIENCY COMMON VARIABLE
     Dosage: 42.5 G, UNK
     Route: 065

REACTIONS (7)
  - Skin mass [Unknown]
  - Discomfort [Unknown]
  - Abdominal distension [Unknown]
  - Infusion site pruritus [Unknown]
  - Malaise [Unknown]
  - Infusion site erythema [Unknown]
  - Urinary tract infection [Unknown]
